FAERS Safety Report 21390813 (Version 1)
Quarter: 2022Q3

REPORT INFORMATION
  Report Type: Spontaneous
  Country: US (occurrence: US)
  Receive Date: 20220929
  Receipt Date: 20220929
  Transmission Date: 20221027
  Serious: Yes (Other)
  Sender: FDA-Public Use
  Company Number: US-PFIZER INC-202201177239

PATIENT
  Age: 31 Year
  Sex: Male

DRUGS (2)
  1. ETANERCEPT [Suspect]
     Active Substance: ETANERCEPT
     Indication: Arthritis reactive
     Dosage: UNK
     Route: 058
     Dates: start: 2003, end: 2004
  2. METHOTREXATE [Concomitant]
     Active Substance: METHOTREXATE
     Indication: Arthritis reactive
     Dosage: 15 MG, WEEKLY

REACTIONS (2)
  - Iridocyclitis [Unknown]
  - Iritis [Unknown]
